FAERS Safety Report 19875962 (Version 1)
Quarter: 2021Q3

REPORT INFORMATION
  Report Type: Spontaneous
  Country: US (occurrence: US)
  Receive Date: 20210924
  Receipt Date: 20210924
  Transmission Date: 20211014
  Serious: No
  Sender: FDA-Public Use
  Company Number: US-SA-2021SA313300

PATIENT
  Age: 57 Year
  Sex: Female

DRUGS (2)
  1. MULTAQ [Suspect]
     Active Substance: DRONEDARONE
     Indication: ATRIAL FIBRILLATION
     Dosage: 200 MG, Q12H
     Route: 065
     Dates: start: 20210722
  2. MULTAQ [Suspect]
     Active Substance: DRONEDARONE
     Dosage: 2 DF, QD
     Route: 065
     Dates: start: 20210902

REACTIONS (5)
  - Urticaria [Unknown]
  - Rash [Unknown]
  - Pruritus [Unknown]
  - Wrong technique in product usage process [Unknown]
  - Rash macular [Unknown]

NARRATIVE: CASE EVENT DATE: 20210722
